FAERS Safety Report 7593761-4 (Version None)
Quarter: 2011Q3

REPORT INFORMATION
  Report Type: 
  Country: None (occurrence: None)
  Receive Date: 20110706
  Receipt Date: 20110624
  Transmission Date: 20111222
  Serious: Yes (Hospitalization)
  Sender: FDA-Public Use
  Company Number: PHFR2011GB03916

PATIENT
  Age: 27 Year
  Sex: Male
  Weight: 140 kg

DRUGS (1)
  1. CLOZAPINE [Suspect]

REACTIONS (7)
  - OEDEMA PERIPHERAL [None]
  - DEEP VEIN THROMBOSIS [None]
  - PULMONARY EMBOLISM [None]
  - TACHYCARDIA [None]
  - HYPERHIDROSIS [None]
  - HYPOXIA [None]
  - OVERWEIGHT [None]
